FAERS Safety Report 13791823 (Version 2)
Quarter: 2018Q4

REPORT INFORMATION
  Report Type: Spontaneous
  Country: US (occurrence: US)
  Receive Date: 20170725
  Receipt Date: 20181101
  Transmission Date: 20190204
  Serious: Yes (Other)
  Sender: FDA-Public Use
  Company Number: US-BAUSCH-BL-2017-022369

PATIENT
  Sex: Male
  Weight: 72.3 kg

DRUGS (3)
  1. HYDROCORTISONE. [Suspect]
     Active Substance: HYDROCORTISONE
     Dosage: ON INCREASED DOSE (STARTED AT AGE OF 9 YEARS)
     Route: 065
  2. HYDROCORTISONE. [Suspect]
     Active Substance: HYDROCORTISONE
     Indication: ADRENOGENITAL SYNDROME
     Route: 065
  3. HYDROCORTISONE. [Suspect]
     Active Substance: HYDROCORTISONE
     Dosage: 40 MG IN THE MORNING AND 20 MG IN THE EVENING (DOSE REDUCED)
     Route: 065

REACTIONS (1)
  - Blood growth hormone decreased [Recovered/Resolved]
